FAERS Safety Report 11434874 (Version 2)
Quarter: 2015Q3

REPORT INFORMATION
  Report Type: Spontaneous
  Country: US (occurrence: US)
  Receive Date: 20150831
  Receipt Date: 20150904
  Transmission Date: 20151125
  Serious: No
  Sender: FDA-Public Use
  Company Number: US-009507513-1508USA010010

PATIENT
  Age: 32 Year
  Sex: Female
  Weight: 145.13 kg

DRUGS (1)
  1. NEXPLANON [Suspect]
     Active Substance: ETONOGESTREL
     Indication: CONTRACEPTION
     Dosage: 1 IMPLANT/3 YEARS
     Route: 059
     Dates: start: 20150223

REACTIONS (10)
  - Implant site fibrosis [Unknown]
  - Complication of device insertion [Unknown]
  - Implant site scar [Unknown]
  - Irritability [Unknown]
  - Fatigue [Unknown]
  - Headache [Unknown]
  - Weight increased [Unknown]
  - Sleep-related eating disorder [Unknown]
  - Pollakiuria [Unknown]
  - Pain in extremity [Unknown]

NARRATIVE: CASE EVENT DATE: 2015
